FAERS Safety Report 17878170 (Version 6)
Quarter: 2020Q4

REPORT INFORMATION
  Report Type: Report from Study
  Country: None (occurrence: BE)
  Receive Date: 20200610
  Receipt Date: 20201030
  Transmission Date: 20210113
  Serious: Yes (Death, Life-Threatening, Hospitalization, Other)
  Sender: FDA-Public Use
  Company Number: BE-ABBVIE-20K-013-3434486-00

PATIENT
  Age: 82 Year
  Sex: Male
  Weight: 61 kg

DRUGS (7)
  1. DUODOPA [Suspect]
     Active Substance: CARBIDOPA\LEVODOPA
     Dosage: MD: 5ML; CD: 5.3 ML/H FOR 16HRS; ED: 2.5ML
     Route: 050
     Dates: start: 202007
  2. REMERGON [Concomitant]
     Active Substance: MIRTAZAPINE
     Indication: PRODUCT USED FOR UNKNOWN INDICATION
  3. DUODOPA [Suspect]
     Active Substance: CARBIDOPA\LEVODOPA
     Dosage: MD: 5ML; CD: 5.3 ML/H FOR 16HRS; ED: 2.5ML
     Route: 050
     Dates: start: 20190913
  4. DUODOPA [Suspect]
     Active Substance: CARBIDOPA\LEVODOPA
     Indication: PARKINSON^S DISEASE
     Route: 050
     Dates: start: 20171120, end: 20190104
  5. DUODOPA [Suspect]
     Active Substance: CARBIDOPA\LEVODOPA
     Dosage: MD: 5ML; CD: 5 ML/H FOR 16HRS; ED: 2.5ML
     Route: 050
     Dates: start: 20190104, end: 20190913
  6. LORMETAZEPAM [Concomitant]
     Active Substance: LORMETAZEPAM
     Indication: PRODUCT USED FOR UNKNOWN INDICATION
  7. TOLTERODINE [Concomitant]
     Active Substance: TOLTERODINE
     Indication: PRODUCT USED FOR UNKNOWN INDICATION
     Dosage: RETARD

REACTIONS (15)
  - General physical health deterioration [Not Recovered/Not Resolved]
  - Confusional state [Unknown]
  - COVID-19 [Unknown]
  - On and off phenomenon [Unknown]
  - Intentional medical device removal by patient [Recovered/Resolved]
  - Fall [Unknown]
  - Colon cancer [Fatal]
  - Sedative therapy [Unknown]
  - COVID-19 [Recovered/Resolved]
  - Disinhibition [Unknown]
  - Wheelchair user [Unknown]
  - Off label use [Not Recovered/Not Resolved]
  - Restlessness [Unknown]
  - Bedridden [Unknown]
  - Weight decreased [Unknown]

NARRATIVE: CASE EVENT DATE: 202003
